FAERS Safety Report 22754320 (Version 2)
Quarter: 2024Q3

REPORT INFORMATION
  Report Type: Spontaneous
  Country: US (occurrence: US)
  Receive Date: 20230727
  Receipt Date: 20240920
  Transmission Date: 20241017
  Serious: Yes (Hospitalization, Other)
  Sender: NOVO NORDISK
  Company Number: US-NOVOPROD-1093121

PATIENT
  Age: 64 Year
  Sex: Male

DRUGS (2)
  1. NOVOLOG [Suspect]
     Active Substance: INSULIN ASPART
     Dosage: UNK
  2. NOVOLOG [Suspect]
     Active Substance: INSULIN ASPART
     Indication: Type 2 diabetes mellitus
     Dosage: 4 UNITS WITH EACH MEAL; SLIDING SCALE
     Dates: start: 2022

REACTIONS (5)
  - Pancreatitis [Recovered/Resolved]
  - Cholelithiasis [Unknown]
  - Pancreatic disorder [Unknown]
  - Gastrointestinal disorder [Unknown]
  - Gastrointestinal disorder [Unknown]

NARRATIVE: CASE EVENT DATE: 20220209
